FAERS Safety Report 7523375-3 (Version None)
Quarter: 2011Q2

REPORT INFORMATION
  Report Type: 
  Country: None (occurrence: None)
  Receive Date: 20110603
  Receipt Date: 20110525
  Transmission Date: 20111010
  Serious: Yes (Other)
  Sender: FDA-Public Use
  Company Number: B0713865A

PATIENT
  Age: 31 Year
  Sex: Female

DRUGS (1)
  1. AVODART [Suspect]
     Dosage: .5MG PER DAY
     Route: 067
     Dates: start: 20080101, end: 20100901

REACTIONS (3)
  - OFF LABEL USE [None]
  - ABORTION SPONTANEOUS [None]
  - DRUG EXPOSURE DURING PREGNANCY [None]
